FAERS Safety Report 18113368 (Version 1)
Quarter: 2020Q3

REPORT INFORMATION
  Report Type: Spontaneous
  Country: US (occurrence: US)
  Receive Date: 20200805
  Receipt Date: 20200805
  Transmission Date: 20201103
  Serious: Yes (Other)
  Sender: FDA-Public Use
  Company Number: None

PATIENT
  Age: 53 Year
  Sex: Female
  Weight: 67.5 kg

DRUGS (7)
  1. PAROXETINE. [Concomitant]
     Active Substance: PAROXETINE
  2. DOXYCYCLINE HYCLATE. [Suspect]
     Active Substance: DOXYCYCLINE HYCLATE
     Indication: SKIN INFECTION
     Route: 048
  3. VIT D [Concomitant]
     Active Substance: VITAMIN D NOS
  4. MULTIVITAMIN [Concomitant]
     Active Substance: VITAMINS
  5. MELATONIN [Concomitant]
     Active Substance: MELATONIN
  6. HYDROXYZINE [Concomitant]
     Active Substance: HYDROXYZINE HYDROCHLORIDE
  7. FISH OIL [Concomitant]
     Active Substance: FISH OIL

REACTIONS (2)
  - Suicidal ideation [None]
  - Depression [None]

NARRATIVE: CASE EVENT DATE: 20200619
